FAERS Safety Report 8496337-X (Version None)
Quarter: 2012Q3

REPORT INFORMATION
  Report Type: 
  Country: None (occurrence: None)
  Receive Date: 20120709
  Receipt Date: 20120703
  Transmission Date: 20120928
  Serious: No
  Sender: FDA-Public Use
  Company Number: US-PFIZER INC-2012119859

PATIENT
  Sex: Female
  Weight: 77.1 kg

DRUGS (2)
  1. ADVIL PM [Suspect]
     Indication: INSOMNIA
     Dosage: 200/38 MG, DAILY
     Dates: start: 20120101, end: 20120101
  2. EXFORGE [Concomitant]
     Indication: HYPERTENSION
     Dosage: 10/160 MG, DAILY

REACTIONS (2)
  - FEELING ABNORMAL [None]
  - DRUG INEFFECTIVE [None]
